FAERS Safety Report 8873229 (Version 1)
Quarter: 2012Q4

REPORT INFORMATION
  Report Type: Spontaneous
  Country: US (occurrence: None)
  Receive Date: 20121026
  Receipt Date: 20121026
  Transmission Date: 20130627
  Serious: Yes (Death)
  Sender: FDA-Public Use
  Company Number: None

PATIENT
  Age: 80 Year
  Sex: Female
  Weight: 85.73 kg

DRUGS (1)
  1. XARELTO [Suspect]
     Route: 048

REACTIONS (3)
  - Off label use [None]
  - Haemorrhage intracranial [None]
  - Unresponsive to stimuli [None]
